FAERS Safety Report 6438651-5 (Version None)
Quarter: 2009Q4

REPORT INFORMATION
  Report Type: 
  Country: None (occurrence: None)
  Receive Date: 20091110
  Receipt Date: 20091026
  Transmission Date: 20100525
  Serious: Yes (Death, Hospitalization)
  Sender: FDA-Public Use
  Company Number: 2009AC000320

PATIENT
  Sex: Male

DRUGS (12)
  1. DIGOXIN [Suspect]
     Dosage: UNKNOWN; PO
     Route: 048
     Dates: start: 20080209
  2. LIPITOR [Concomitant]
  3. LASIX [Concomitant]
  4. K-DUR [Concomitant]
  5. LOPRESSOR [Concomitant]
  6. LISINOPRIL [Concomitant]
  7. PREVACID [Concomitant]
  8. CALCITRIOL [Concomitant]
  9. SODIUM BICARBONATE IN PLASTIC CONTAINER [Concomitant]
  10. LANTUS [Concomitant]
  11. ASPIRIN [Concomitant]
  12. NITROGLYCERIN [Concomitant]

REACTIONS (8)
  - CHEST PAIN [None]
  - CORONARY ARTERY DISEASE [None]
  - DYSPNOEA [None]
  - ECONOMIC PROBLEM [None]
  - HYPERHIDROSIS [None]
  - INJURY [None]
  - LEFT VENTRICULAR DYSFUNCTION [None]
  - OEDEMA PERIPHERAL [None]
